FAERS Safety Report 12722987 (Version 1)
Quarter: 2016Q3

REPORT INFORMATION
  Report Type: Spontaneous
  Country: KR (occurrence: KR)
  Receive Date: 20160908
  Receipt Date: 20160908
  Transmission Date: 20161109
  Serious: Yes (Other)
  Sender: FDA-Public Use
  Company Number: KR-BRISTOL-MYERS SQUIBB COMPANY-BMS-2016-073341

PATIENT
  Age: 57 Year
  Sex: Female

DRUGS (1)
  1. TRIAMCINOLONE ACETONIDE. [Suspect]
     Active Substance: TRIAMCINOLONE ACETONIDE
     Indication: PRODUCT USE ISSUE
     Dosage: 1 DF, UNK
     Route: 050

REACTIONS (2)
  - Hypopyon [Recovering/Resolving]
  - Product use issue [Unknown]
